FAERS Safety Report 4494388-3 (Version None)
Quarter: 2004Q4

REPORT INFORMATION
  Report Type: 
  Country: None (occurrence: None)
  Receive Date: 20041102
  Receipt Date: 20041020
  Transmission Date: 20050328
  Serious: Yes (Death)
  Sender: FDA-Public Use
  Company Number: EWC020932249

PATIENT
  Age: 34 Year
  Sex: Female

DRUGS (3)
  1. ZYPREXA [Suspect]
     Indication: SCHIZOPHRENIA
     Dosage: 20 MG/L IN THE EVENING
     Dates: start: 20010807, end: 20010915
  2. IMOVANE (ZOPLICONE) [Concomitant]
  3. PROPAVAN (PROPIOMAZINE MALEATE) [Concomitant]

REACTIONS (2)
  - HYPERGLYCAEMIA [None]
  - OVERDOSE [None]
